FAERS Safety Report 23157233 (Version 1)
Quarter: 2023Q4

REPORT INFORMATION
  Report Type: Report from Study
  Country: US (occurrence: US)
  Receive Date: 20231108
  Receipt Date: 20231108
  Transmission Date: 20240110
  Serious: Yes (Other)
  Sender: FDA-Public Use
  Company Number: US-ABBVIE-5485815

PATIENT
  Age: 59 Year
  Sex: Male

DRUGS (1)
  1. HUMIRA [Suspect]
     Active Substance: ADALIMUMAB
     Indication: Product used for unknown indication
     Route: 058

REACTIONS (10)
  - Infected fistula [Unknown]
  - Fatigue [Unknown]
  - Dry skin [Unknown]
  - Arthralgia [Unknown]
  - White blood cell count abnormal [Unknown]
  - Nasopharyngitis [Unknown]
  - Pneumonia [Unknown]
  - Bronchitis [Unknown]
  - Dandruff [Unknown]
  - Dry skin [Unknown]

NARRATIVE: CASE EVENT DATE: 20221001
